FAERS Safety Report 10208480 (Version 1)
Quarter: 2014Q2

REPORT INFORMATION
  Report Type: Spontaneous
  Country: BR (occurrence: BR)
  Receive Date: 20140530
  Receipt Date: 20140530
  Transmission Date: 20141212
  Serious: Yes (Hospitalization)
  Sender: FDA-Public Use
  Company Number: BR-GLAXOSMITHKLINE-A1075116A

PATIENT
  Age: 7 Month
  Sex: Female
  Weight: 8 kg

DRUGS (4)
  1. FLIXOTIDE [Suspect]
     Indication: ASTHMA
     Dosage: 2PUFF TWICE PER DAY
     Route: 065
     Dates: start: 201401
  2. SALBUTAMOL [Suspect]
     Indication: ASTHMA
     Dosage: 2PUFF SEE DOSAGE TEXT
     Route: 055
     Dates: start: 201401
  3. MONTELUKAST SODIUM [Suspect]
     Indication: ASTHMA
     Route: 048
     Dates: start: 201401
  4. AZITHROMYCIN [Concomitant]
     Indication: PNEUMONIA
     Dosage: 4ML FOUR TIMES PER DAY
     Route: 048
     Dates: start: 20140523

REACTIONS (4)
  - Asthmatic crisis [Unknown]
  - Pneumonia [Unknown]
  - Pyrexia [Not Recovered/Not Resolved]
  - Respiratory distress [Not Recovered/Not Resolved]
